FAERS Safety Report 5211289-3 (Version None)
Quarter: 2006Q4

REPORT INFORMATION
  Report Type: 
  Country: None (occurrence: None)
  Receive Date: 20061114
  Receipt Date: 20061002
  Transmission Date: 20070319
  Serious: No
  Sender: FDA-Public Use
  Company Number: S06-USA-04032-01

PATIENT
  Age: 56 Year
  Sex: Female

DRUGS (4)
  1. NAMENDA [Suspect]
     Indication: FIBROMYALGIA
     Dosage: 5 MG ONCE PO
     Route: 048
     Dates: start: 20060101, end: 20060101
  2. NAMENDA [Suspect]
     Indication: FIBROMYALGIA
     Dosage: 5 MG ONCE PO
     Route: 048
     Dates: start: 20060101, end: 20060101
  3. DOXEPIN HCL [Concomitant]
  4. KLONOPIN [Concomitant]

REACTIONS (1)
  - INSOMNIA [None]
